FAERS Safety Report 7179525-4 (Version None)
Quarter: 2010Q4

REPORT INFORMATION
  Report Type: 
  Country: None (occurrence: None)
  Receive Date: 20101209
  Receipt Date: 20101125
  Transmission Date: 20110411
  Serious: Yes (Other)
  Sender: FDA-Public Use
  Company Number: 022807

PATIENT
  Age: 54 Year
  Sex: Male

DRUGS (2)
  1. KEPPRA [Suspect]
     Dosage: (500 MG BID ORAL)
     Route: 048
     Dates: start: 20100601
  2. CANDESARTAN [Concomitant]

REACTIONS (1)
  - LOSS OF LIBIDO [None]
